FAERS Safety Report 22703751 (Version 2)
Quarter: 2024Q2

REPORT INFORMATION
  Report Type: Spontaneous
  Country: FR (occurrence: FR)
  Receive Date: 20230714
  Receipt Date: 20240524
  Transmission Date: 20240715
  Serious: Yes (Hospitalization)
  Sender: FDA-Public Use
  Company Number: FR-AFSSAPS-NT2023000720

PATIENT
  Age: 11 Year
  Sex: Male
  Weight: 41.7 kg

DRUGS (2)
  1. CLARITHROMYCIN [Suspect]
     Active Substance: CLARITHROMYCIN
     Indication: Product used for unknown indication
     Dosage: 1230 MILLIGRAM, ONCE A DAY (615 MG 2X/DAY)
     Route: 048
     Dates: start: 20230615
  2. AUGMENTIN [Concomitant]
     Active Substance: AMOXICILLIN\CLAVULANATE POTASSIUM
     Indication: Product used for unknown indication
     Dosage: 3 GRAM, ONCE A DAY(1 G 3X/D)
     Route: 048
     Dates: start: 20230605

REACTIONS (1)
  - Erythema nodosum [Recovered/Resolved]

NARRATIVE: CASE EVENT DATE: 20230616
